FAERS Safety Report 6103195-7 (Version None)
Quarter: 2009Q1

REPORT INFORMATION
  Report Type: 
  Country: None (occurrence: None)
  Receive Date: 20090227
  Receipt Date: 20090225
  Transmission Date: 20090719
  Serious: Yes (Life-Threatening, Hospitalization)
  Sender: FDA-Public Use
  Company Number: 100#03#2009-00761

PATIENT
  Age: 59 Year
  Sex: Female

DRUGS (5)
  1. RISPERIDONE [Suspect]
     Indication: MENTAL DISORDER
     Dosage: 2 MG THREE TIMES DAILY, ORAL
     Route: 048
     Dates: end: 20090208
  2. DIAZEPAM [Concomitant]
  3. DOSULEPIN (DOTHIEPIN) [Concomitant]
  4. PROPIVERINE (PROPIVERINE) [Concomitant]
  5. SIMVASTATIN [Concomitant]

REACTIONS (2)
  - ERYTHEMA AB IGNE [None]
  - HYPOTHERMIA [None]
